FAERS Safety Report 6711744-0 (Version None)
Quarter: 2010Q2

REPORT INFORMATION
  Report Type: 
  Country: None (occurrence: None)
  Receive Date: 20100505
  Receipt Date: 20100429
  Transmission Date: 20101027
  Serious: Yes (Hospitalization)
  Sender: FDA-Public Use
  Company Number: A0851036A

PATIENT
  Sex: Male

DRUGS (1)
  1. LAMICTAL [Suspect]
     Indication: DEPRESSION
     Route: 065
     Dates: start: 20100101

REACTIONS (5)
  - CHEILITIS [None]
  - HEADACHE [None]
  - PYREXIA [None]
  - RASH [None]
  - TONGUE ERUPTION [None]
